FAERS Safety Report 21701451 (Version 6)
Quarter: 2023Q1

REPORT INFORMATION
  Report Type: Report from Study
  Country: NZ (occurrence: None)
  Receive Date: 20221208
  Receipt Date: 20230213
  Transmission Date: 20230418
  Serious: Yes (Hospitalization)
  Sender: FDA-Public Use
  Company Number: NZ-ROCHE-3105450

PATIENT
  Age: 68 Year
  Sex: Male
  Weight: 47.7 kg

DRUGS (21)
  1. ATEZOLIZUMAB [Suspect]
     Active Substance: ATEZOLIZUMAB
     Indication: Hepatocellular carcinoma
     Dosage: DATE OF MOST RECENT DOSE OF ATEZOLIZUMAB ADMINISTERED PRIOR TO THE ONSET OF SAE ON 03/MAY/2022, 08/N
     Route: 041
     Dates: start: 20201216
  2. BEVACIZUMAB [Suspect]
     Active Substance: BEVACIZUMAB
     Indication: Hepatocellular carcinoma
     Dosage: DATE OF MOST RECENT DOSE 741 MG OF BEVACIZUMAB ADMINISTERED PRIOR TO THE ONSET OF SAE ON 03/MAY/2022
     Route: 042
     Dates: start: 20201216
  3. TIRAGOLUMAB [Suspect]
     Active Substance: TIRAGOLUMAB
     Indication: Hepatocellular carcinoma
     Dosage: DATE OF MOST RECENT DOSE OF TIRAGOLUMAB ADMINISTERED PRIOR TO THE ONSET OF SAE ON 03/MAY/2022, 08/NO
     Route: 042
     Dates: start: 20201216
  4. DIMETHICONE [Concomitant]
     Active Substance: DIMETHICONE
     Indication: Dry skin
     Dates: start: 20210126
  5. CODEINE PHOSPHATE [Concomitant]
     Active Substance: CODEINE PHOSPHATE
     Indication: Arthralgia
     Route: 048
     Dates: start: 20210217
  6. ZOPICLONE [Concomitant]
     Active Substance: ZOPICLONE
     Indication: Insomnia
     Route: 048
     Dates: start: 20210330
  7. MENTHOL 1% IN AQUEOUS CREAM [Concomitant]
     Indication: Rash
     Route: 061
     Dates: start: 20210330
  8. PINETARSOL [Concomitant]
     Indication: Rash
     Route: 061
     Dates: start: 20210330
  9. BETA SCALP [Concomitant]
     Indication: Rash
     Route: 061
     Dates: start: 20210330
  10. THYROXINE [Concomitant]
     Active Substance: LEVOTHYROXINE
     Indication: Hypothyroidism
     Route: 048
     Dates: start: 20211208
  11. THYROXINE [Concomitant]
     Active Substance: LEVOTHYROXINE
     Route: 048
     Dates: start: 20221108
  12. THYROXINE [Concomitant]
     Active Substance: LEVOTHYROXINE
     Route: 048
     Dates: start: 20220119, end: 20221108
  13. OMEPRAZOLE [Concomitant]
     Active Substance: OMEPRAZOLE
     Route: 048
     Dates: start: 20220118
  14. DOCUSATE SODIUM\SENNOSIDES A AND B [Concomitant]
     Active Substance: DOCUSATE SODIUM\SENNOSIDES A AND B
     Indication: Constipation
     Dosage: 2 TBSP
     Route: 048
     Dates: start: 20220110
  15. DP LOTION HC [Concomitant]
     Indication: Rash maculo-papular
     Route: 061
     Dates: start: 20211206
  16. LORATADINE [Concomitant]
     Active Substance: LORATADINE
     Indication: Rash
     Route: 048
     Dates: start: 20210824
  17. LORATADINE [Concomitant]
     Active Substance: LORATADINE
     Indication: Pruritus
  18. OXYCODONE HYDROCHLORIDE [Concomitant]
     Active Substance: OXYCODONE HYDROCHLORIDE
     Indication: Abdominal discomfort
     Route: 048
     Dates: start: 20220110
  19. CHOLECALCIFEROL [Concomitant]
     Active Substance: CHOLECALCIFEROL
     Route: 048
     Dates: start: 20221202
  20. FAMOTIDINE [Concomitant]
     Active Substance: FAMOTIDINE
     Route: 048
     Dates: start: 20221202
  21. TRIMETHOPRIM [Concomitant]
     Active Substance: TRIMETHOPRIM
     Dates: start: 20221202

REACTIONS (2)
  - Nephropathy [Not Recovered/Not Resolved]
  - Hyponatraemia [Recovered/Resolved]

NARRATIVE: CASE EVENT DATE: 20220523
